FAERS Safety Report 19878060 (Version 1)
Quarter: 2021Q3

REPORT INFORMATION
  Report Type: Spontaneous
  Country: US (occurrence: US)
  Receive Date: 20210924
  Receipt Date: 20210924
  Transmission Date: 20211014
  Serious: Yes (Other)
  Sender: FDA-Public Use
  Company Number: US-CIPLA LTD.-2021US06487

PATIENT

DRUGS (46)
  1. CYCLOPHOSPHAMIDE. [Suspect]
     Active Substance: CYCLOPHOSPHAMIDE
     Dosage: UNK, SIXTH LINE TREATMENT
     Route: 065
  2. BORTEZOMIB. [Suspect]
     Active Substance: BORTEZOMIB
     Dosage: UNK, 6TH LINE TREATMENT
     Route: 065
  3. CARFILZOMIB [Suspect]
     Active Substance: CARFILZOMIB
     Dosage: 56 MILLIGRAM/SQ. METER, QW, 9TH LINE TREATMENT
     Route: 065
  4. DEXAMETHASONE. [Suspect]
     Active Substance: DEXAMETHASONE
     Dosage: 40 MG, 2ND LINE TREATMENT
     Route: 065
  5. DEXAMETHASONE. [Suspect]
     Active Substance: DEXAMETHASONE
     Dosage: UNK, 4TH LINE TREATMENT
     Route: 065
  6. DEXAMETHASONE. [Suspect]
     Active Substance: DEXAMETHASONE
     Dosage: UNK, 5TH LINE TREATMENT
     Route: 065
  7. DEXAMETHASONE. [Suspect]
     Active Substance: DEXAMETHASONE
     Dosage: UNK, 6TH LINE TREATMENT
     Route: 065
  8. FLUDARABINE [Suspect]
     Active Substance: FLUDARABINE PHOSPHATE
     Indication: PLASMA CELL MYELOMA
     Dosage: UNK, 8TH LINE TREATMENT
     Route: 065
  9. LENALIDOMIDE [Suspect]
     Active Substance: LENALIDOMIDE
     Indication: PLASMA CELL MYELOMA
     Dosage: 25 MG, 2ND LINE TREATMENT
     Route: 065
  10. MELPHALAN. [Suspect]
     Active Substance: MELPHALAN
     Indication: PLASMA CELL MYELOMA
     Dosage: 200 MG/M2, UNK
     Route: 065
  11. VENETOCLAX. [Suspect]
     Active Substance: VENETOCLAX
     Dosage: UNK, 8TH LINE TREATMENT
     Route: 065
  12. CYCLOPHOSPHAMIDE. [Suspect]
     Active Substance: CYCLOPHOSPHAMIDE
     Dosage: UNK, EIGHTH LINE TREATMENT
     Route: 065
  13. CARMUSTINE. [Suspect]
     Active Substance: CARMUSTINE
     Indication: BONE MARROW CONDITIONING REGIMEN
  14. CISPLATIN. [Suspect]
     Active Substance: CISPLATIN
     Indication: PLASMA CELL MYELOMA
     Dosage: UNK, 5TH LINE TREATMENT
     Route: 065
  15. DEXAMETHASONE. [Suspect]
     Active Substance: DEXAMETHASONE
     Dosage: 40 MILLIGRAM, ONCE WEEKLY IN A 28 DAY CYCLE, 9TH LINE TREATMENT
     Route: 065
  16. ELOTUZUMAB. [Suspect]
     Active Substance: ELOTUZUMAB
     Indication: PLASMA CELL MYELOMA
     Dosage: UNK, 3RD LINE TREATMENT
     Route: 065
  17. VENETOCLAX. [Suspect]
     Active Substance: VENETOCLAX
     Indication: PLASMA CELL MYELOMA
     Dosage: UNK, SEVENTH LINE TREATMENT
     Route: 065
  18. CARFILZOMIB [Suspect]
     Active Substance: CARFILZOMIB
     Indication: PLASMA CELL MYELOMA
     Dosage: UNK, 5TH LINE TREATMENT
     Route: 065
  19. CYTARABINE. [Suspect]
     Active Substance: CYTARABINE
     Indication: BONE MARROW CONDITIONING REGIMEN
  20. DARATUMUMAB [Suspect]
     Active Substance: DARATUMUMAB
     Indication: PLASMA CELL MYELOMA
     Dosage: UNK, 4TH LINE TREATMENT
     Route: 065
  21. ETOPOSIDE. [Suspect]
     Active Substance: ETOPOSIDE
     Indication: PLASMA CELL MYELOMA
     Dosage: UNK, 6TH LINE TREATMENT
     Route: 065
  22. POMALIDOMIDE [Suspect]
     Active Substance: POMALIDOMIDE
     Dosage: UNK, 5TH LINE TREATMENT
     Route: 065
  23. BORTEZOMIB. [Suspect]
     Active Substance: BORTEZOMIB
     Dosage: 1.3 MG/M2 EVERY 14 DAY MAINTENANCE FOR 1 MONTH, INJECTION
     Route: 058
  24. CARMUSTINE. [Suspect]
     Active Substance: CARMUSTINE
     Indication: PLASMA CELL MYELOMA
     Dosage: UNK, 8TH LINE TREATMENT
     Route: 065
  25. ETOPOSIDE. [Suspect]
     Active Substance: ETOPOSIDE
     Indication: BONE MARROW CONDITIONING REGIMEN
     Dosage: UNK, 5TH LINE TREATMENT
     Route: 065
  26. FLUDARABINE [Suspect]
     Active Substance: FLUDARABINE PHOSPHATE
     Indication: BONE MARROW CONDITIONING REGIMEN
  27. CYCLOPHOSPHAMIDE. [Suspect]
     Active Substance: CYCLOPHOSPHAMIDE
     Indication: PLASMA CELL MYELOMA
     Dosage: UNK, FIRST LINE TREATMENT
     Route: 065
  28. CYCLOPHOSPHAMIDE. [Suspect]
     Active Substance: CYCLOPHOSPHAMIDE
     Dosage: UNK, FIFTH LINE TREATMENT
     Route: 065
  29. CARFILZOMIB [Suspect]
     Active Substance: CARFILZOMIB
     Dosage: UNK, 6TH LINE TREATMENT
     Route: 065
  30. DEXAMETHASONE. [Suspect]
     Active Substance: DEXAMETHASONE
     Indication: PLASMA CELL MYELOMA
     Dosage: UNK, 1ST LINE TREATMENT, WEEKLY
     Route: 065
  31. LENALIDOMIDE [Suspect]
     Active Substance: LENALIDOMIDE
     Dosage: UNK, 3RD LINE TREATMENT
     Route: 065
  32. AZACITIDINE. [Suspect]
     Active Substance: AZACITIDINE
     Indication: PLASMA CELL MYELOMA
     Dosage: UNK, SEVENTH LINE TREATMENT
     Route: 065
  33. BORTEZOMIB. [Suspect]
     Active Substance: BORTEZOMIB
     Indication: PLASMA CELL MYELOMA
     Dosage: UNK, 1ST LINE TREATMENT, WEEKLY
     Route: 065
  34. CYTARABINE. [Suspect]
     Active Substance: CYTARABINE
     Indication: PLASMA CELL MYELOMA
     Dosage: UNK, 8TH LINE TREATMENT
     Route: 065
  35. DARATUMUMAB [Suspect]
     Active Substance: DARATUMUMAB
     Dosage: UNK, 5TH LINE TREATMENT
     Route: 065
  36. LIPOSOMAL DOXORUBICIN [Suspect]
     Active Substance: DOXORUBICIN HYDROCHLORIDE
     Indication: PLASMA CELL MYELOMA
     Dosage: UNK, 6TH LINE TREATMENT
     Route: 065
  37. POMALIDOMIDE [Suspect]
     Active Substance: POMALIDOMIDE
     Indication: PLASMA CELL MYELOMA
     Dosage: UNK, 4TH LINE TREATMENT
     Route: 065
  38. POMALIDOMIDE [Suspect]
     Active Substance: POMALIDOMIDE
     Dosage: UNK, 16TH LINE TREATMENT
     Route: 065
  39. CARFILZOMIB [Suspect]
     Active Substance: CARFILZOMIB
     Dosage: 27 MG/M2, DURING CYCLE 10 OF 9TH LINE TREATMENT
     Route: 065
  40. CISPLATIN. [Suspect]
     Active Substance: CISPLATIN
     Dosage: UNK, 8TH LINE TREATMENT
     Route: 065
  41. DEXAMETHASONE. [Suspect]
     Active Substance: DEXAMETHASONE
     Dosage: UNK, 3RD LINE TREATMENT
     Route: 065
  42. MELPHALAN. [Suspect]
     Active Substance: MELPHALAN
     Indication: BONE MARROW CONDITIONING REGIMEN
     Dosage: UNK, 8TH LINE TREATMENT
     Route: 065
  43. BENDAMUSTINE [Suspect]
     Active Substance: BENDAMUSTINE
     Indication: PLASMA CELL MYELOMA
     Dosage: UNK, 6TH LINE TREATMENT
     Route: 065
  44. CARFILZOMIB [Suspect]
     Active Substance: CARFILZOMIB
     Dosage: UNK, 8TH LINE TREATMENT
     Route: 065
  45. DOXORUBICIN [Suspect]
     Active Substance: DOXORUBICIN
     Indication: PLASMA CELL MYELOMA
     Dosage: UNK, 8TH LINE TREATMENT
     Route: 065
  46. ETOPOSIDE. [Suspect]
     Active Substance: ETOPOSIDE
     Dosage: UNK, 8TH LINE TREATMENT
     Route: 065

REACTIONS (1)
  - Drug ineffective [Unknown]
